FAERS Safety Report 8874767 (Version 8)
Quarter: 2019Q2

REPORT INFORMATION
  Report Type: Spontaneous
  Country: US (occurrence: US)
  Receive Date: 20121023
  Receipt Date: 20190422
  Transmission Date: 20190711
  Serious: Yes (Other)
  Sender: FDA-Public Use
  Company Number: US-PFIZER INC-2012261814

PATIENT
  Age: 53 Year
  Sex: Female
  Weight: 70 kg

DRUGS (8)
  1. IBUPROFEN. [Concomitant]
     Active Substance: IBUPROFEN
     Indication: NECK PAIN
     Dosage: 600 MG, 4X/DAY (EVERY 6 HRS)
  2. LYRICA [Suspect]
     Active Substance: PREGABALIN
     Indication: FIBROMYALGIA
     Dosage: 150 MG, 2X/DAY
     Route: 048
     Dates: start: 2008
  3. DIAZEPAM. [Concomitant]
     Active Substance: DIAZEPAM
     Dosage: 2 MG, UNK
  4. SIMVASTATIN. [Concomitant]
     Active Substance: SIMVASTATIN
     Indication: BLOOD CHOLESTEROL INCREASED
     Dosage: 20 MG, DAILY
  5. NORCO [Concomitant]
     Active Substance: ACETAMINOPHEN\HYDROCODONE BITARTRATE
     Indication: HEADACHE
  6. FLUTICASONE PROPIONATE. [Concomitant]
     Active Substance: FLUTICASONE PROPIONATE
     Dosage: UNK
  7. NORCO [Concomitant]
     Active Substance: ACETAMINOPHEN\HYDROCODONE BITARTRATE
     Indication: NECK PAIN
     Dosage: UNK, 4X/DAY
  8. RANITIDINE. [Concomitant]
     Active Substance: RANITIDINE
     Indication: ABDOMINAL PAIN UPPER
     Dosage: 300 MG, 2X/DAY (2 X 150 MG) TWO TIMES A DAY (MORNING AND NIGHT)
     Route: 048

REACTIONS (12)
  - Drug ineffective [Unknown]
  - Pain [Unknown]
  - Grip strength decreased [Unknown]
  - Hypoacusis [Unknown]
  - Burning sensation [Unknown]
  - Thirst [Unknown]
  - Glossodynia [Unknown]
  - Pain in extremity [Unknown]
  - Nausea [Unknown]
  - Dysgeusia [Unknown]
  - Dizziness [Unknown]
  - Dry mouth [Unknown]
